FAERS Safety Report 11329464 (Version 4)
Quarter: 2020Q4

REPORT INFORMATION
  Report Type: Spontaneous
  Country: FI (occurrence: FI)
  Receive Date: 20150803
  Receipt Date: 20201229
  Transmission Date: 20210113
  Serious: Yes (Other)
  Sender: FDA-Public Use
  Company Number: FI-ACCORD-032709

PATIENT
  Sex: Male
  Weight: 2.21 kg

DRUGS (30)
  1. LEVETIRACETAM. [Suspect]
     Active Substance: LEVETIRACETAM
     Indication: EPILEPSY
     Dosage: LATER RECEIVED 1000 MG TWICE DAILY, ON DAY 4: 3000 MG
     Route: 064
  2. ALBETOL [Concomitant]
     Active Substance: LABETALOL HYDROCHLORIDE
     Indication: HYPERTENSION
     Dosage: 100 MG, 2X/DAY (BID)
     Route: 064
     Dates: start: 20120817, end: 20130206
  3. ENOXAPARIN [Concomitant]
     Active Substance: ENOXAPARIN
     Indication: THROMBOSIS
     Route: 063
  4. KEPPRA [Suspect]
     Active Substance: LEVETIRACETAM
     Indication: OFF LABEL USE
     Dosage: 1000 MG, 2X/DAY (BID)
     Route: 064
     Dates: start: 20120729
  5. PROPOFOL. [Concomitant]
     Active Substance: PROPOFOL
     Indication: PRODUCT USED FOR UNKNOWN INDICATION
     Route: 063
  6. PROPOFOL. [Concomitant]
     Active Substance: PROPOFOL
     Indication: PRODUCT USED FOR UNKNOWN INDICATION
     Route: 064
  7. LORAZEPAM. [Concomitant]
     Active Substance: LORAZEPAM
     Indication: PRODUCT USED FOR UNKNOWN INDICATION
     Route: 064
  8. PRO-EPANUTIN [Concomitant]
     Active Substance: FOSPHENYTOIN SODIUM
     Indication: EPILEPSY
     Dosage: 250 MG, 2X/DAY (BID)
     Route: 064
     Dates: start: 20120729, end: 20120814
  9. MIDAZOLAM. [Concomitant]
     Active Substance: MIDAZOLAM
     Indication: PRODUCT USED FOR UNKNOWN INDICATION
     Route: 064
  10. AMOXIN COMP [Concomitant]
     Active Substance: AMOXICILLIN\CLAVULANIC ACID
     Indication: PNEUMONIA
     Route: 064
     Dates: start: 20120820, end: 20120828
  11. KLEXANE [Concomitant]
     Active Substance: ENOXAPARIN
     Indication: CEREBRAL VENOUS SINUS THROMBOSIS
     Dosage: 40 MG, 2X/DAY (BID)
     Route: 063
     Dates: start: 20130206, end: 201302
  12. ENOXAPARIN [Concomitant]
     Active Substance: ENOXAPARIN
     Indication: HAEMORRHAGE INTRACRANIAL
     Dosage: LATER RECEIVED 40 MG BID ALSO RECEIVED 80 MG ON 29-JUL-2012
     Route: 064
  13. FOLVITE [Concomitant]
     Active Substance: FOLIC ACID
     Indication: HIGH RISK PREGNANCY
     Dosage: 4 MG, ONCE DAILY (QD)
     Route: 063
     Dates: start: 20130216, end: 201302
  14. LACOSAMIDE. [Suspect]
     Active Substance: LACOSAMIDE
     Indication: SEIZURE
     Dosage: ON DAY 4, 300 MG (TRANSMAMMARY)100 MG, 2X/DAY (BID)
     Route: 064
     Dates: start: 20120730
  15. TAZOCIN [Concomitant]
     Active Substance: PIPERACILLIN SODIUM\TAZOBACTAM SODIUM
     Indication: PNEUMONIA
     Route: 064
     Dates: start: 20120830
  16. ALBETOL [Concomitant]
     Active Substance: LABETALOL HYDROCHLORIDE
     Indication: HYPERTENSION
     Dosage: 100 MG, 2X/DAY (BID)
     Route: 063
     Dates: start: 20130206, end: 201302
  17. KEPPRA [Suspect]
     Active Substance: LEVETIRACETAM
     Indication: OFF LABEL USE
     Dosage: 3000 MG
     Route: 064
  18. HYDANTIN [Concomitant]
     Active Substance: PHENYTOIN
     Indication: PRODUCT USED FOR UNKNOWN INDICATION
     Route: 064
     Dates: start: 20120814, end: 20120910
  19. HEPARIN [Concomitant]
     Active Substance: HEPARIN SODIUM
     Indication: CEREBRAL VENOUS SINUS THROMBOSIS
     Route: 064
     Dates: start: 20120728, end: 20120729
  20. OBSIDAN [Concomitant]
     Indication: IRON DEFICIENCY ANAEMIA
     Route: 064
     Dates: start: 20120815, end: 20120903
  21. DIAZEPAM. [Concomitant]
     Active Substance: DIAZEPAM
     Indication: SEIZURE
     Route: 064
  22. FOLVITE [Concomitant]
     Active Substance: FOLIC ACID
     Indication: HIGH RISK PREGNANCY
     Dosage: 4 MG, ONCE DAILY (QD)
     Route: 064
     Dates: start: 20120816, end: 20130206
  23. SOMAC [Concomitant]
     Active Substance: PANTOPRAZOLE SODIUM
     Indication: PROPHYLAXIS
     Route: 064
     Dates: start: 20120629, end: 20120814
  24. STESOLID [Concomitant]
     Active Substance: DIAZEPAM
     Indication: SEIZURE
     Dosage: 10 MG
     Route: 064
  25. FOSPHENYTOIN/FOSPHENYTOIN SODIUM [Concomitant]
     Indication: EPILEPSY
     Dosage: ON DAY 4, 600 MG
     Route: 064
  26. LORAZEPAM. [Concomitant]
     Active Substance: LORAZEPAM
     Indication: STATUS EPILEPTICUS
     Dosage: ON DAY 4, 6 MG
     Route: 064
  27. LABETALOL [Concomitant]
     Active Substance: LABETALOL\LABETALOL HYDROCHLORIDE
     Indication: HYPERTENSION
     Dosage: HIGH BLOOD PRESSURE
     Route: 064
  28. KLEXANE [Concomitant]
     Active Substance: ENOXAPARIN
     Indication: CEREBRAL VENOUS SINUS THROMBOSIS
     Dosage: 40 MG, 2X/DAY (BID)
     Route: 064
     Dates: start: 20120729, end: 20130206
  29. BIOPHILUS [Concomitant]
     Active Substance: DIETARY SUPPLEMENT\PROBIOTICS
     Indication: PROPHYLAXIS
     Route: 064
     Dates: start: 20120820, end: 20120824
  30. ENOXAPARIN [Concomitant]
     Active Substance: ENOXAPARIN
     Indication: THROMBOSIS
     Dosage: LATER RECEIVED 40 MG BID ALSO RECEIVED 80 MG ON 29-JUL-2012
     Route: 064

REACTIONS (5)
  - Poor feeding infant [Recovered/Resolved]
  - Foetal exposure during pregnancy [Unknown]
  - Exposure via breast milk [Unknown]
  - Somnolence [Recovered/Resolved]
  - Low birth weight baby [Unknown]

NARRATIVE: CASE EVENT DATE: 201207
